FAERS Safety Report 12932491 (Version 2)
Quarter: 2016Q4

REPORT INFORMATION
  Report Type: Spontaneous
  Country: BR (occurrence: BR)
  Receive Date: 20161111
  Receipt Date: 20161117
  Transmission Date: 20170207
  Serious: Yes (Death)
  Sender: FDA-Public Use
  Company Number: BR-TORRENT-00003671

PATIENT
  Age: 82 Year
  Sex: Female
  Weight: 68 kg

DRUGS (2)
  1. EPZ [Suspect]
     Active Substance: DONEPEZIL HYDROCHLORIDE
     Indication: DEMENTIA ALZHEIMER^S TYPE
     Dosage: EPZ 10 MG ONCE DAILY/ORAL.
     Route: 048
     Dates: start: 2007, end: 20161006
  2. EPZ [Suspect]
     Active Substance: DONEPEZIL HYDROCHLORIDE
     Indication: DEMENTIA ALZHEIMER^S TYPE
     Dosage: EPZ 5 MG ONCE DAILY/ORAL.
     Route: 048
     Dates: start: 20161006, end: 20161021

REACTIONS (3)
  - Death [Fatal]
  - Therapy change [None]
  - Asthenia [None]

NARRATIVE: CASE EVENT DATE: 20161021
